FAERS Safety Report 21386845 (Version 2)
Quarter: 2023Q1

REPORT INFORMATION
  Report Type: Spontaneous
  Country: CA (occurrence: CA)
  Receive Date: 20220928
  Receipt Date: 20230208
  Transmission Date: 20230417
  Serious: Yes (Hospitalization)
  Sender: FDA-Public Use
  Company Number: CA-002147023-NVSC2022CA214592

PATIENT
  Age: 53 Year
  Sex: Male

DRUGS (8)
  1. OMALIZUMAB [Suspect]
     Active Substance: OMALIZUMAB
     Indication: Asthma
     Route: 058
  2. OMALIZUMAB [Suspect]
     Active Substance: OMALIZUMAB
     Route: 058
  3. OMALIZUMAB [Suspect]
     Active Substance: OMALIZUMAB
     Route: 058
  4. OMALIZUMAB [Suspect]
     Active Substance: OMALIZUMAB
     Route: 058
  5. OMALIZUMAB [Suspect]
     Active Substance: OMALIZUMAB
     Route: 058
  6. OMALIZUMAB [Suspect]
     Active Substance: OMALIZUMAB
     Route: 058
  7. CLONAZEPAM [Suspect]
     Active Substance: CLONAZEPAM
     Indication: Product used for unknown indication
     Route: 065
  8. CLONAZEPAM [Suspect]
     Active Substance: CLONAZEPAM
     Route: 065

REACTIONS (12)
  - Herpes zoster [Unknown]
  - Hyperhidrosis [Unknown]
  - Illness [Unknown]
  - Influenza [Unknown]
  - Malaise [Unknown]
  - Sinus disorder [Unknown]
  - Nasopharyngitis [Unknown]
  - Dermatitis atopic [Unknown]
  - Asthma [Unknown]
  - Cough [Unknown]
  - Dizziness [Unknown]
  - Drug hypersensitivity [Unknown]
